FAERS Safety Report 4785596-2 (Version None)
Quarter: 2005Q3

REPORT INFORMATION
  Report Type: 
  Country: None (occurrence: None)
  Receive Date: 20050929
  Receipt Date: 20050819
  Transmission Date: 20060218
  Serious: Yes (Hospitalization)
  Sender: FDA-Public Use
  Company Number: 0508-399

PATIENT
  Sex: Female

DRUGS (1)
  1. DUONEB [Suspect]

REACTIONS (1)
  - TACHYCARDIA [None]
